FAERS Safety Report 15759994 (Version 18)
Quarter: 2020Q3

REPORT INFORMATION
  Report Type: Spontaneous
  Country: US (occurrence: US)
  Receive Date: 20181226
  Receipt Date: 20200907
  Transmission Date: 20201102
  Serious: Yes (Other)
  Sender: FDA-Public Use
  Company Number: PHEH2018US054776

PATIENT
  Sex: Female
  Weight: 77 kg

DRUGS (6)
  1. ZOFRAN [Suspect]
     Active Substance: ONDANSETRON HYDROCHLORIDE
     Indication: PRODUCT USED FOR UNKNOWN INDICATION
     Route: 042
  2. ONDANSETRON [Suspect]
     Active Substance: ONDANSETRON
     Indication: MORNING SICKNESS
     Dosage: 4 MG, UNK
     Route: 048
     Dates: start: 20140704, end: 20141215
  3. ZOFRAN [Suspect]
     Active Substance: ONDANSETRON HYDROCHLORIDE
     Indication: PRODUCT USED FOR UNKNOWN INDICATION
     Route: 048
  4. ZOFRAN ODT [Suspect]
     Active Substance: ONDANSETRON HYDROCHLORIDE
     Indication: PRODUCT USED FOR UNKNOWN INDICATION
     Route: 048
  5. ONDANSETRON DR REDDY [Suspect]
     Active Substance: ONDANSETRON
     Indication: MORNING SICKNESS
     Dosage: 8 MG, UNK
     Route: 065
     Dates: start: 20140823, end: 20140823
  6. ONDANSETRON [Suspect]
     Active Substance: ONDANSETRON
     Indication: MORNING SICKNESS
     Dosage: 8 MG, UNK
     Route: 048
     Dates: start: 20140720, end: 20141218

REACTIONS (13)
  - Injury [Unknown]
  - Cough [Unknown]
  - Dyspnoea [Unknown]
  - Urinary tract infection [Unknown]
  - Migraine [Unknown]
  - Joint injury [Unknown]
  - Product use in unapproved indication [Unknown]
  - Head injury [Unknown]
  - Maternal exposure during pregnancy [Unknown]
  - Arthropod bite [Unknown]
  - Dermatitis [Unknown]
  - Gestational diabetes [Unknown]
  - Essential hypertension [Unknown]
